FAERS Safety Report 5459778-0 (Version None)
Quarter: 2007Q3

REPORT INFORMATION
  Report Type: 
  Country: None (occurrence: None)
  Receive Date: 20070919
  Receipt Date: 20070907
  Transmission Date: 20080115
  Serious: Yes (Death)
  Sender: FDA-Public Use
  Company Number: US-ROCHE-517210

PATIENT
  Age: 62 Year
  Sex: Male
  Weight: 67.4 kg

DRUGS (10)
  1. PEG-INTERFERON ALFA 2A (RO 25-8310) [Suspect]
     Indication: HEPATITIS C
     Route: 058
     Dates: start: 20060526
  2. RIBAVIRIN [Suspect]
     Indication: HEPATITIS C
     Dosage: 400 MG EVERY MORNING, 600 MG EVERY EVENING
     Route: 048
     Dates: start: 20060526, end: 20070902
  3. ASPIRIN [Concomitant]
     Dosage: REPORTED AS 81 MG PO DA
  4. GEMFIBROZIL [Concomitant]
     Dosage: REPORTED AS 600 MG DA
  5. K-DUR 10 [Concomitant]
     Dosage: DRUG REPORTED AS K DUR 10MEQ SR 1 PO DA
     Route: 048
  6. SUSTIVA [Concomitant]
     Dosage: AT BEDTIME
     Route: 048
  7. TRUVADA [Concomitant]
     Dosage: STRENGTH: 200/300MG
     Route: 048
  8. VIAGRA [Concomitant]
     Dosage: DRUG REPORTED AS VIAGRA 100. 1/4 TO 1/2 IN THE EVENING
     Route: 048
  9. HYDROCHLOROTHIAZIDE [Concomitant]
     Dosage: REPORTED AS 1/2 TAB PO DA
     Route: 048
  10. NICOTINE [Concomitant]
     Dosage: AS DIRECTED. UNCLEAR IF PATIENT WAS CURRENTLY TAKING.

REACTIONS (4)
  - CARDIAC ARREST [None]
  - MALAISE [None]
  - SYNCOPE [None]
  - UNRESPONSIVE TO STIMULI [None]
